FAERS Safety Report 19770597 (Version 1)
Quarter: 2021Q3

REPORT INFORMATION
  Report Type: Spontaneous
  Country: US (occurrence: US)
  Receive Date: 20210827
  Receipt Date: 20210827
  Transmission Date: 20211014
  Serious: Yes (Life-Threatening, Hospitalization, Disabling, Other)
  Sender: FDA-Public Use
  Company Number: None

PATIENT
  Age: 76 Year
  Sex: Female
  Weight: 91.63 kg

DRUGS (8)
  1. OXYGEN 24/7 [Concomitant]
  2. PROLIA [Suspect]
     Active Substance: DENOSUMAB
     Indication: OSTEOPENIA
     Dosage: ?          QUANTITY:1 DF DOSAGE FORM;OTHER FREQUENCY:1 EVERY 6 MONTHS;?
     Dates: end: 20150917
  3. LYMPHEDEMA PUMP [Concomitant]
  4. MIRALAX [Concomitant]
     Active Substance: POLYETHYLENE GLYCOL 3350
  5. SYSTANE EYEDROPS [Concomitant]
     Active Substance: POLYETHYLENE GLYCOL 400\PROPYLENE GLYCOL
  6. NEBULIZER TREATMENTS [Concomitant]
  7. STOOL SOFTENER (DOCUSATE) [Concomitant]
     Active Substance: DOCUSATE
  8. WALKER [DEVICE] [Concomitant]
     Active Substance: DEVICE

REACTIONS (8)
  - Appendicitis [None]
  - Haemorrhage [None]
  - Cough [None]
  - Abdominal hernia [None]
  - Localised infection [None]
  - Renal failure [None]
  - Bronchitis [None]
  - Anaemia [None]

NARRATIVE: CASE EVENT DATE: 20150909
